FAERS Safety Report 25947134 (Version 1)
Quarter: 2025Q4

REPORT INFORMATION
  Report Type: Report from Study
  Country: US (occurrence: US)
  Receive Date: 20251022
  Receipt Date: 20251022
  Transmission Date: 20260119
  Serious: Yes (Hospitalization)
  Sender: ALEXION PHARMACEUTICALS
  Company Number: US-AstraZeneca-CH-00974087A

PATIENT

DRUGS (7)
  1. TEZEPELUMAB [Suspect]
     Active Substance: TEZEPELUMAB
     Indication: Asthma
     Dosage: 210 MILLIGRAM PER MILLILITRE, Q4W
  2. TEZEPELUMAB [Suspect]
     Active Substance: TEZEPELUMAB
  3. MONTELUKAST [Concomitant]
     Active Substance: MONTELUKAST
     Route: 065
  4. ADVAIR HFA [Concomitant]
     Active Substance: FLUTICASONE PROPIONATE\SALMETEROL XINAFOATE
     Route: 065
  5. SINGULAIR [Concomitant]
     Active Substance: MONTELUKAST SODIUM
     Route: 065
  6. SPIRIVA [Concomitant]
     Active Substance: TIOTROPIUM BROMIDE MONOHYDRATE
     Route: 065
  7. TRELEGY ELLIPTA [Concomitant]
     Active Substance: FLUTICASONE FUROATE\UMECLIDINIUM BROMIDE\VILANTEROL TRIFENATATE
     Route: 065

REACTIONS (12)
  - Respiratory disorder [Unknown]
  - Drug ineffective [Unknown]
  - COVID-19 [Unknown]
  - Asthma [Unknown]
  - Poor quality sleep [Unknown]
  - Somnolence [Unknown]
  - Rhinitis [Unknown]
  - Oedema mucosal [Unknown]
  - Nasal mucosal disorder [Unknown]
  - Dysphagia [Unknown]
  - Food allergy [Unknown]
  - Vocal cord inflammation [Unknown]
